FAERS Safety Report 5852008-7 (Version None)
Quarter: 2008Q3

REPORT INFORMATION
  Report Type: 
  Country: None (occurrence: None)
  Receive Date: 20080820
  Receipt Date: 20080808
  Transmission Date: 20090109
  Serious: Yes (Hospitalization)
  Sender: FDA-Public Use
  Company Number: FR-PFIZER INC-2008067118

PATIENT
  Sex: Male
  Weight: 23 kg

DRUGS (2)
  1. TRIFLUCAN [Suspect]
     Indication: CENTRAL LINE INFECTION
     Dosage: FREQ:EVERY DAY
     Route: 042
     Dates: start: 20080719, end: 20080729
  2. BACTRIM [Suspect]
     Indication: CENTRAL LINE INFECTION
     Dosage: FREQ:EVERY DAY
     Route: 042
     Dates: start: 20080718, end: 20080729

REACTIONS (1)
  - PANCYTOPENIA [None]
